FAERS Safety Report 7328566-2 (Version None)
Quarter: 2011Q1

REPORT INFORMATION
  Report Type: 
  Country: None (occurrence: None)
  Receive Date: 20110225
  Receipt Date: 20110225
  Transmission Date: 20110831
  Serious: Yes (Other)
  Sender: FDA-Public Use
  Company Number: None

PATIENT
  Sex: Male
  Weight: 79.3795 kg

DRUGS (2)
  1. KETOCONAZOLE [Suspect]
     Indication: FOLLICULITIS
     Dosage: 2 TABLETS EACH WEEK-MONDAY- PO
     Route: 048
     Dates: start: 20101108, end: 20110117
  2. EXTINA [Suspect]
     Indication: FOLLICULITIS
     Dosage: SMALL AMOUNT OF FINGER DAILY TOP
     Route: 061
     Dates: start: 20110131, end: 20110207

REACTIONS (2)
  - DEPRESSION [None]
  - SUICIDAL IDEATION [None]
